FAERS Safety Report 8158741-9 (Version None)
Quarter: 2012Q1

REPORT INFORMATION
  Report Type: 
  Country: None (occurrence: None)
  Receive Date: 20120223
  Receipt Date: 20120210
  Transmission Date: 20120608
  Serious: Yes (Hospitalization)
  Sender: FDA-Public Use
  Company Number: BR-UCBSA-051878

PATIENT
  Age: 51 Year
  Sex: Male

DRUGS (12)
  1. OMEPRAZOLE [Suspect]
  2. MORPHINE SULFATE [Suspect]
  3. VITAMIN D [Suspect]
  4. PREDNISONE [Suspect]
  5. MABTHERA [Suspect]
     Route: 042
     Dates: start: 20110701, end: 20110715
  6. ACETAMINOPHEN [Suspect]
  7. LEVOTHYROXINE SODIUM [Suspect]
  8. THALIDOMIDE [Suspect]
  9. MOTILIUM [Suspect]
  10. AMOXICILLIN AND CLAVULANATE POTASSIUM [Suspect]
  11. CALCIUM CARBONATE [Suspect]
  12. DIMETHICONE [Suspect]
     Dosage: 40 DROPS EVERY 8 HOURS

REACTIONS (7)
  - NAUSEA [None]
  - DYSPHAGIA [None]
  - MOUTH HAEMORRHAGE [None]
  - SYNCOPE [None]
  - EATING DISORDER [None]
  - HAEMORRHAGE SUBCUTANEOUS [None]
  - ABASIA [None]
